FAERS Safety Report 6962348-6 (Version None)
Quarter: 2010Q3

REPORT INFORMATION
  Report Type: 
  Country: None (occurrence: None)
  Receive Date: 20100823
  Receipt Date: 20100616
  Transmission Date: 20110219
  Serious: No
  Sender: FDA-Public Use
  Company Number: 014063

PATIENT
  Sex: Male
  Weight: 98 kg

DRUGS (9)
  1. CIMZIA [Suspect]
     Indication: CROHN'S DISEASE
     Dosage: (400 MG 1X/2 WEEKS SUBCUTANEOUS)
     Route: 058
     Dates: start: 20100501
  2. PREDNISONE [Concomitant]
  3. PRILOSEC [Concomitant]
  4. FOLIC ACID [Concomitant]
  5. DARVOCET [Concomitant]
  6. ULTRAM [Concomitant]
  7. WELLBUTRIN [Concomitant]
  8. ASACOL [Concomitant]
  9. BECOTAL FORTE MIT VITAMIN B12 [Concomitant]

REACTIONS (2)
  - ASTHENIA [None]
  - CHILLS [None]
